FAERS Safety Report 19978783 (Version 1)
Quarter: 2021Q4

REPORT INFORMATION
  Report Type: Spontaneous
  Country: US (occurrence: US)
  Receive Date: 20211021
  Receipt Date: 20211021
  Transmission Date: 20220303
  Serious: Yes (Other)
  Sender: FDA-Public Use
  Company Number: None

PATIENT
  Age: 41 Year
  Sex: Female

DRUGS (1)
  1. REGEN-COV [Suspect]
     Active Substance: CASIRIVIMAB\IMDEVIMAB

REACTIONS (7)
  - Dyspnoea [None]
  - Eye pruritus [None]
  - Throat irritation [None]
  - Pharyngeal swelling [None]
  - Swollen tongue [None]
  - Heart rate increased [None]
  - Feeling abnormal [None]

NARRATIVE: CASE EVENT DATE: 20211019
